FAERS Safety Report 8543865-4 (Version None)
Quarter: 2012Q3

REPORT INFORMATION
  Report Type: 
  Country: None (occurrence: None)
  Receive Date: 20120727
  Receipt Date: 20120718
  Transmission Date: 20120928
  Serious: Yes (Hospitalization)
  Sender: FDA-Public Use
  Company Number: PHHO2011NL04007

PATIENT
  Sex: Female
  Weight: 64 kg

DRUGS (10)
  1. METFORMIN HYDROCHLORIDE [Concomitant]
     Dosage: 500 MG, UNK
  2. INSULIN [Concomitant]
     Indication: DIABETES MELLITUS
     Dosage: Q2 24
  3. ASPIRIN [Concomitant]
     Dosage: 86 MG, UNK
  4. LOSARTAN POTASSIUM [Concomitant]
     Dosage: 100 MG, UNK
  5. PANTOPRAZOLE [Concomitant]
     Dosage: 40 MG, UNK
  6. AMLODIPINE [Concomitant]
     Dosage: 5 MG, UNK
  7. HYDROXYZINE [Concomitant]
     Dosage: 10 MG, UNK
  8. ATORVASTATIN [Concomitant]
     Dosage: 40 MG, UNK
  9. ALISKIREN [Suspect]
     Indication: CARDIOVASCULAR DISORDER
     Dosage: 300 MG, UNK
     Route: 048
     Dates: start: 20100426
  10. FUROSEMIDE [Concomitant]
     Dosage: 80 MG, UNK

REACTIONS (6)
  - NAUSEA [None]
  - VOMITING [None]
  - SUBCUTANEOUS ABSCESS [None]
  - CEREBROVASCULAR ACCIDENT [None]
  - DIABETES MELLITUS [None]
  - HAEMOGLOBIN DECREASED [None]
